FAERS Safety Report 4656315-5 (Version None)
Quarter: 2005Q2

REPORT INFORMATION
  Report Type: 
  Country: None (occurrence: None)
  Receive Date: 20050509
  Receipt Date: 20050428
  Transmission Date: 20051028
  Serious: Yes (Hospitalization)
  Sender: FDA-Public Use
  Company Number: US-JNJFOC-20050401719

PATIENT
  Sex: Female

DRUGS (34)
  1. TYLENOL (CAPLET) [Suspect]
     Route: 049
  2. TYLENOL (CAPLET) [Suspect]
     Indication: ARTHRITIS
     Route: 049
  3. TEGRETOL [Concomitant]
  4. DILANTIN [Concomitant]
  5. ZESTRIL [Concomitant]
  6. CALCIUM + D [Concomitant]
     Dosage: 600/200 MG IU TAB, ONE DAILY
  7. RELPAX [Concomitant]
  8. LEVOTHROID [Concomitant]
  9. VITAMIN B-12 [Concomitant]
     Dosage: 1000 MCG SL TAB, ONE DAILY
     Route: 060
  10. CELEXA [Concomitant]
     Dosage: 30-40 MG, 1 IN 1 DAY
  11. ALBUTEROL [Concomitant]
     Dosage: 2 PUFFS, BID-TID, PRN
  12. PROTONIX [Concomitant]
  13. TRAZODONE HCL [Concomitant]
     Dosage: 50-100 MG, 1 IN 1 DAY
  14. POTASSIUM CHLORIDE [Concomitant]
  15. PREMARIN [Concomitant]
     Dosage: 1.25 MG, DAILY, 25 DAYS EACH MONTH
  16. PHENERGAN [Concomitant]
  17. DARVOCET-N 100 [Concomitant]
  18. DARVOCET-N 100 [Concomitant]
     Dosage: 100-650 MG, Q4H, PRN
  19. ALLEGRA [Concomitant]
  20. TYLENOL/CODEINE #3 [Concomitant]
     Dosage: 300-30 MG, Q4H, DAILY, PRN
  21. NEURONTIN [Concomitant]
     Dosage: INCREASE DOSE TO 4XDAILY
  22. ALBUTEROL SULFATE [Concomitant]
  23. ATROVENT [Concomitant]
     Route: 045
  24. K-DUR 10 [Concomitant]
  25. NEXIUM [Concomitant]
  26. METHOCARBONAL [Concomitant]
     Dosage: 500 MG, 4 IN 1 DAY, AS NEEDED
  27. ELESTAT [Concomitant]
     Dosage: 1 GTT, EACH EYE, OPTHALMIC
     Route: 047
  28. LEVOXYL [Concomitant]
  29. PHENERGAN [Concomitant]
     Dosage: 25 MG, 4 IN 1 DAY, AS NEEDED
  30. VYTORIN [Concomitant]
     Dosage: 10/40, 1 IN 1 DAY
  31. ZYRTEC-D 12 HOUR [Concomitant]
  32. FUROSEMIDE [Concomitant]
  33. FLONASE [Concomitant]
     Dosage: 50 MCG - 2 PUFFS DAILY
  34. PREVACID [Concomitant]

REACTIONS (4)
  - DRUG ABUSER [None]
  - HYPOAESTHESIA [None]
  - OVERDOSE [None]
  - PHOTOSENSITIVITY REACTION [None]
